FAERS Safety Report 12345492 (Version 1)
Quarter: 2016Q2

REPORT INFORMATION
  Report Type: Spontaneous
  Country: US (occurrence: US)
  Receive Date: 20160509
  Receipt Date: 20160509
  Transmission Date: 20160815
  Serious: No
  Sender: FDA-Public Use
  Company Number: US-ASTRAZENECA-2012BM09468

PATIENT
  Age: 3615 Week
  Sex: Female
  Weight: 90.7 kg

DRUGS (4)
  1. EXENATIDE [Concomitant]
     Active Substance: EXENATIDE
  2. BYETTA [Suspect]
     Active Substance: EXENATIDE
     Route: 058
  3. BYDUREON [Suspect]
     Active Substance: EXENATIDE
     Indication: TYPE 2 DIABETES MELLITUS
     Route: 058
     Dates: start: 2014
  4. METFORMIN [Concomitant]
     Active Substance: METFORMIN HYDROCHLORIDE
     Indication: TYPE 2 DIABETES MELLITUS

REACTIONS (3)
  - Drug dose omission [Unknown]
  - Underdose [Unknown]
  - Weight decreased [Unknown]

NARRATIVE: CASE EVENT DATE: 20160324
